FAERS Safety Report 11864556 (Version 1)
Quarter: 2015Q4

REPORT INFORMATION
  Report Type: Spontaneous
  Country: US (occurrence: US)
  Receive Date: 20151223
  Receipt Date: 20151223
  Transmission Date: 20160305
  Serious: Yes (Death)
  Sender: FDA-Public Use
  Company Number: US-VANDA PHARMACEUTICALS, INC-2015ILOUS001529

PATIENT

DRUGS (1)
  1. FANAPT [Suspect]
     Active Substance: ILOPERIDONE
     Indication: SCHIZOPHRENIA
     Dosage: UNK
     Route: 048
     Dates: start: 2010, end: 2010

REACTIONS (1)
  - Completed suicide [Fatal]

NARRATIVE: CASE EVENT DATE: 2010
